FAERS Safety Report 5079526-6 (Version None)
Quarter: 2006Q3

REPORT INFORMATION
  Report Type: 
  Country: None (occurrence: None)
  Receive Date: 20060814
  Receipt Date: 20060130
  Transmission Date: 20061208
  Serious: No
  Sender: FDA-Public Use
  Company Number: US-BRISTOL-MYERS SQUIBB COMPANY-13264411

PATIENT
  Age: 52 Year
  Sex: Female
  Weight: 118 kg

DRUGS (4)
  1. GLUCOVANCE [Suspect]
     Indication: DIABETES MELLITUS NON-INSULIN-DEPENDENT
  2. BYETTA [Suspect]
     Indication: DIABETES MELLITUS NON-INSULIN-DEPENDENT
     Route: 058
     Dates: start: 20051114
  3. HYZAAR [Concomitant]
  4. SYNTHROID [Concomitant]

REACTIONS (11)
  - BLOOD GLUCOSE DECREASED [None]
  - CHILLS [None]
  - DECREASED APPETITE [None]
  - DIARRHOEA [None]
  - EARLY SATIETY [None]
  - FEELING JITTERY [None]
  - GASTROENTERITIS VIRAL [None]
  - HEADACHE [None]
  - HYPERHIDROSIS [None]
  - NAUSEA [None]
  - VOMITING [None]
